FAERS Safety Report 8972128 (Version 1)
Quarter: 2012Q4

REPORT INFORMATION
  Report Type: 
  Country: US (occurrence: US)
  Receive Date: 20121219
  Receipt Date: 20121219
  Transmission Date: 20130627
  Serious: Yes (Other)
  Sender: FDA-Public Use
  Company Number: US-BAYER-2012-132929

PATIENT
  Age: 2 Year
  Sex: Female
  Weight: 11 kg

DRUGS (2)
  1. VANQUISH [Suspect]
     Dosage: UNK
     Route: 048
     Dates: start: 20121213
  2. VANQUISH [Suspect]
     Dosage: ate 2
     Route: 048
     Dates: start: 20121213

REACTIONS (2)
  - Accidental exposure to product by child [None]
  - Expired drug administered [None]
